FAERS Safety Report 7611091-9 (Version None)
Quarter: 2011Q3

REPORT INFORMATION
  Report Type: 
  Country: None (occurrence: None)
  Receive Date: 20110707
  Receipt Date: 20110627
  Transmission Date: 20111222
  Serious: Yes (Hospitalization)
  Sender: FDA-Public Use
  Company Number: 11-389

PATIENT
  Age: 2 Year
  Sex: Male

DRUGS (3)
  1. IBUPROFEN [Suspect]
     Indication: PRODUCT USED FOR UNKNOWN INDICATION
     Dosage: ORAL
     Route: 048
  2. ACETAMINOPHEN [Concomitant]
  3. TRIMETHOPRIM [Concomitant]

REACTIONS (9)
  - HAEMODIALYSIS [None]
  - BLOOD TEST ABNORMAL [None]
  - TUBULOINTERSTITIAL NEPHRITIS [None]
  - RENAL FAILURE [None]
  - URETERIC OBSTRUCTION [None]
  - PYREXIA [None]
  - VASOCONSTRICTION [None]
  - RENAL PAPILLARY NECROSIS [None]
  - HYPERTENSION [None]
